FAERS Safety Report 22622079 (Version 4)
Quarter: 2024Q3

REPORT INFORMATION
  Report Type: Report from Study
  Country: CN (occurrence: CN)
  Receive Date: 20230620
  Receipt Date: 20240816
  Transmission Date: 20241016
  Serious: Yes (Other)
  Sender: TAKEDA
  Company Number: CN-TAKEDA-2023TUS059317

PATIENT
  Age: 33 Year
  Sex: Male
  Weight: 65 kg

DRUGS (8)
  1. VEDOLIZUMAB [Suspect]
     Active Substance: VEDOLIZUMAB
     Indication: Colitis ulcerative
     Dosage: 300 MILLIGRAM
     Route: 042
     Dates: start: 20220602
  2. FAMCICLOVIR [Concomitant]
     Active Substance: FAMCICLOVIR
     Indication: Inflammatory bowel disease
     Dosage: 250 MILLIGRAM, Q8HR
     Route: 048
     Dates: start: 20230613, end: 20230613
  3. PINAVERIUM BROMIDE [Concomitant]
     Active Substance: PINAVERIUM BROMIDE
     Indication: Inflammatory bowel disease
     Dosage: 50 MILLIGRAM, TID
     Route: 048
     Dates: start: 20230612, end: 20230613
  4. DEXTROSE [Concomitant]
     Active Substance: DEXTROSE\DEXTROSE MONOHYDRATE
     Indication: Fluid imbalance
     Dosage: 500 MILLILITER, QD
     Route: 042
     Dates: start: 20230611, end: 20230613
  5. DEXTROSE\SODIUM CHLORIDE [Concomitant]
     Active Substance: DEXTROSE\SODIUM CHLORIDE
     Indication: Fluid imbalance
     Dosage: 500 MILLILITER, QD
     Route: 042
     Dates: start: 20230611, end: 20230613
  6. POTASSIUM CHLORIDE [Concomitant]
     Active Substance: POTASSIUM CHLORIDE
     Indication: Fluid imbalance
     Dosage: 10 MILLILITER, QD
     Route: 042
     Dates: start: 20230611, end: 20230613
  7. BACILLUS LICHENIFORMIS CAPSULE,LIVE [Concomitant]
     Indication: Inflammatory bowel disease
     Dosage: 1 GRAM, TID
     Route: 048
     Dates: start: 20220604
  8. BACILLUS LICHENIFORMIS CAPSULE,LIVE [Concomitant]
     Dosage: 0.5 GRAM, TID
     Route: 048
     Dates: start: 20230611, end: 20230613

REACTIONS (1)
  - Haematochezia [Recovered/Resolved]

NARRATIVE: CASE EVENT DATE: 20230509
